FAERS Safety Report 9177338 (Version 1)
Quarter: 2013Q1

REPORT INFORMATION
  Report Type: Spontaneous
  Country: ID (occurrence: ID)
  Receive Date: 20130321
  Receipt Date: 20130321
  Transmission Date: 20140127
  Serious: Yes (Death)
  Sender: FDA-Public Use
  Company Number: PHHY2013ID026698

PATIENT
  Sex: Male

DRUGS (1)
  1. GLIVEC [Suspect]
     Indication: CHRONIC MYELOID LEUKAEMIA
     Dosage: 400 MG DAILY
     Route: 048
     Dates: start: 200905

REACTIONS (8)
  - Acute respiratory distress syndrome [Fatal]
  - Lymphadenopathy [Fatal]
  - Gait disturbance [Fatal]
  - Leukocytosis [Fatal]
  - Blood uric acid increased [Fatal]
  - Headache [Fatal]
  - Platelet count increased [Fatal]
  - Haemoglobin decreased [Fatal]
